FAERS Safety Report 17819829 (Version 3)
Quarter: 2020Q3

REPORT INFORMATION
  Report Type: Spontaneous
  Country: US (occurrence: US)
  Receive Date: 20200524
  Receipt Date: 20200701
  Transmission Date: 20201102
  Serious: Yes (Other)
  Sender: FDA-Public Use
  Company Number: US-BEH-2020117537

PATIENT
  Age: 60 Year
  Sex: Female

DRUGS (1)
  1. HIZENTRA [Suspect]
     Active Substance: HUMAN IMMUNOGLOBULIN G
     Dosage: UNK, TIW
     Route: 065

REACTIONS (6)
  - Migraine [Unknown]
  - Nausea [Unknown]
  - Influenza like illness [Unknown]
  - Headache [Unknown]
  - Meningitis aseptic [Unknown]
  - Nausea [Unknown]

NARRATIVE: CASE EVENT DATE: 202004
